FAERS Safety Report 7928321-6 (Version None)
Quarter: 2011Q4

REPORT INFORMATION
  Report Type: 
  Country: None (occurrence: None)
  Receive Date: 20111118
  Receipt Date: 20111116
  Transmission Date: 20120403
  Serious: Yes (Other)
  Sender: FDA-Public Use
  Company Number: CA-ABBOTT-11P-028-0874706-00

PATIENT
  Age: 23 Year
  Sex: Male

DRUGS (1)
  1. BIAXIN XL [Suspect]
     Indication: PRODUCT USED FOR UNKNOWN INDICATION
     Route: 048

REACTIONS (3)
  - PARANOIA [None]
  - HALLUCINATION [None]
  - PSYCHOTIC DISORDER [None]
